FAERS Safety Report 10460958 (Version 1)
Quarter: 2014Q3

REPORT INFORMATION
  Report Type: Spontaneous
  Country: US (occurrence: US)
  Receive Date: 20140918
  Receipt Date: 20140918
  Transmission Date: 20150326
  Serious: Yes (Disabling)
  Sender: FDA-Public Use
  Company Number: US-009507513-1409USA005107

PATIENT
  Age: 59 Year
  Sex: Female

DRUGS (6)
  1. ADVAIR HFA [Suspect]
     Active Substance: FLUTICASONE PROPIONATE\SALMETEROL XINAFOATE
     Indication: CHRONIC OBSTRUCTIVE PULMONARY DISEASE
     Dosage: 1 PUFF (S) TWICE PER DAY, MULTI DOSE POWDER INHALER
     Route: 055
     Dates: start: 2007
  2. VENTOLIN [Suspect]
     Active Substance: ALBUTEROL SULFATE
     Dosage: 5 OR 6 TIMES A DAY
     Route: 055
  3. DULERA [Suspect]
     Active Substance: FORMOTEROL FUMARATE DIHYDRATE\MOMETASONE FUROATE
     Dosage: UNK
     Dates: start: 2014
  4. VENTOLIN [Suspect]
     Active Substance: ALBUTEROL SULFATE
     Indication: ASTHMA
     Dosage: 1 PUFF, AS REQUIRED
     Route: 055
     Dates: start: 2007
  5. CELEBREX [Concomitant]
     Active Substance: CELECOXIB
  6. PROTONIX [Concomitant]
     Active Substance: PANTOPRAZOLE SODIUM

REACTIONS (5)
  - Back injury [Unknown]
  - Intervertebral disc protrusion [Unknown]
  - Rash generalised [Unknown]
  - Pain [Unknown]
  - Abasia [Unknown]

NARRATIVE: CASE EVENT DATE: 2014
